FAERS Safety Report 22161714 (Version 1)
Quarter: 2023Q1

REPORT INFORMATION
  Report Type: Report from Study
  Country: CA (occurrence: None)
  Receive Date: 20230331
  Receipt Date: 20230331
  Transmission Date: 20230418
  Serious: Yes (Other)
  Sender: FDA-Public Use
  Company Number: 2023A072251

PATIENT
  Sex: Female

DRUGS (1)
  1. LYNPARZA [Suspect]
     Active Substance: OLAPARIB
     Indication: Ovarian cancer
     Route: 048
     Dates: start: 20221119

REACTIONS (5)
  - Ascites [Unknown]
  - Dyspnoea [Unknown]
  - Dizziness [Unknown]
  - Tremor [Unknown]
  - Abdominal pain upper [Unknown]
